FAERS Safety Report 22210378 (Version 1)
Quarter: 2023Q2

REPORT INFORMATION
  Report Type: Spontaneous
  Country: FR (occurrence: FR)
  Receive Date: 20230414
  Receipt Date: 20230414
  Transmission Date: 20230721
  Serious: Yes (Hospitalization)
  Sender: FDA-Public Use
  Company Number: FR-ROCHE-3322993

PATIENT
  Age: 74 Year
  Sex: Male

DRUGS (4)
  1. RIFAMPIN [Suspect]
     Active Substance: RIFAMPIN
     Indication: Infection
     Dosage: 1200 MG, (600 MG X 2/DAY)
     Route: 048
     Dates: start: 20230221, end: 20230309
  2. CEFTRIAXONE [Suspect]
     Active Substance: CEFTRIAXONE
     Indication: Infection
     Dosage: 1 G, QD
     Route: 065
     Dates: start: 20230221, end: 20230309
  3. BACTRIM [Suspect]
     Active Substance: SULFAMETHOXAZOLE\TRIMETHOPRIM
     Indication: Infection
     Dosage: 160 MG, QD, (800/160 MG)
     Route: 048
     Dates: start: 20230213, end: 20230221
  4. LINEZOLID [Suspect]
     Active Substance: LINEZOLID
     Indication: Infection
     Dosage: 1200 MG, QD, (600 MG X2)
     Route: 048
     Dates: start: 20230221, end: 20230309

REACTIONS (1)
  - Vascular purpura [Not Recovered/Not Resolved]

NARRATIVE: CASE EVENT DATE: 20230301
